FAERS Safety Report 10501348 (Version 1)
Quarter: 2014Q4

REPORT INFORMATION
  Report Type: Other
  Country: DE (occurrence: DE)
  Receive Date: 20141007
  Receipt Date: 20141007
  Transmission Date: 20150528
  Serious: Yes (Life-Threatening, Hospitalization)
  Sender: FDA-Public Use
  Company Number: DE-LUPIN PHARMACEUTICALS INC.-E2B_00002465

PATIENT
  Age: 58 Year
  Sex: Female

DRUGS (3)
  1. AMANTADIN [Suspect]
     Active Substance: AMANTADINE
     Indication: DEPRESSED MOOD
     Route: 048
     Dates: start: 20140708, end: 20140804
  2. MIRTAZAPIN [Suspect]
     Active Substance: MIRTAZAPINE
     Indication: DEPRESSED MOOD
     Route: 048
     Dates: start: 20140802, end: 20140804
  3. ESCITALOPRAM [Suspect]
     Active Substance: ESCITALOPRAM OXALATE
     Indication: DEPRESSED MOOD
     Route: 048
     Dates: start: 20140717, end: 20140804

REACTIONS (4)
  - Pyrexia [Recovered/Resolved]
  - Myoclonus [Recovered/Resolved]
  - Serotonin syndrome [Recovered/Resolved]
  - Sinus tachycardia [Recovered/Resolved]

NARRATIVE: CASE EVENT DATE: 20140804
